FAERS Safety Report 5385769-4 (Version None)
Quarter: 2007Q3

REPORT INFORMATION
  Report Type: 
  Country: None (occurrence: None)
  Receive Date: 20070712
  Receipt Date: 20070702
  Transmission Date: 20080115
  Serious: Yes (Other)
  Sender: FDA-Public Use
  Company Number: US-PFIZER INC-2007055756

PATIENT
  Sex: Female

DRUGS (4)
  1. CHANTIX [Suspect]
     Indication: SMOKING CESSATION THERAPY
     Dosage: TEXT:EVERY DAY
  2. TRAMADOL HCL [Concomitant]
  3. PAXIL [Concomitant]
  4. TOPAMAX [Concomitant]

REACTIONS (4)
  - DRY SKIN [None]
  - PAIN [None]
  - PRURITUS [None]
  - RASH [None]
